FAERS Safety Report 19494149 (Version 1)
Quarter: 2021Q3

REPORT INFORMATION
  Report Type: Spontaneous
  Country: US (occurrence: US)
  Receive Date: 20210706
  Receipt Date: 20210706
  Transmission Date: 20211014
  Serious: No
  Sender: FDA-Public Use
  Company Number: US-TEVA-2021-US-1930426

PATIENT
  Sex: Male

DRUGS (11)
  1. LENVIMA [Suspect]
     Active Substance: LENVATINIB
     Indication: HEPATITIS C
     Dosage: 12 MILLIGRAM DAILY;
     Route: 048
     Dates: start: 20210505
  2. ONDANSETRON HCL [Concomitant]
     Active Substance: ONDANSETRON HYDROCHLORIDE
     Route: 065
  3. PANTOPRAZOLE SODIUM. [Concomitant]
     Active Substance: PANTOPRAZOLE SODIUM
     Route: 065
  4. LENVIMA [Suspect]
     Active Substance: LENVATINIB
     Indication: CHOLANGIOCARCINOMA
  5. NIACIN. [Concomitant]
     Active Substance: NIACIN
     Route: 065
  6. OXYCODONE [Suspect]
     Active Substance: OXYCODONE
     Route: 065
  7. SENNA?S [Concomitant]
     Active Substance: DOCUSATE SODIUM\SENNOSIDES
     Route: 065
  8. VITAMIN D3 [Concomitant]
     Active Substance: CHOLECALCIFEROL
     Route: 065
  9. AMLODIPINE BESYLATE. [Concomitant]
     Active Substance: AMLODIPINE BESYLATE
     Route: 065
  10. METHYLPREDNISOLONE. [Suspect]
     Active Substance: METHYLPREDNISOLONE
     Indication: POLYMYOSITIS
     Route: 065
  11. CARVEDILOL ER [Concomitant]
     Route: 065

REACTIONS (7)
  - Nausea [Unknown]
  - Blood glucose increased [Unknown]
  - Malaise [Unknown]
  - Fatigue [Unknown]
  - Constipation [Unknown]
  - Myalgia [Unknown]
  - Glossodynia [Unknown]
